FAERS Safety Report 8276104-2 (Version None)
Quarter: 2012Q2

REPORT INFORMATION
  Report Type: 
  Country: None (occurrence: None)
  Receive Date: 20120406
  Receipt Date: 20120328
  Transmission Date: 20120825
  Serious: Yes (Other)
  Sender: FDA-Public Use
  Company Number: 2012SP016941

PATIENT
  Age: 58 Year
  Sex: Female

DRUGS (3)
  1. PEGASYS [Suspect]
     Indication: HEPATITIS C
     Dates: start: 20120214
  2. TELAPREVIR [Suspect]
     Indication: HEPATITIS C
     Dates: start: 20120214, end: 20120229
  3. RIBAVIRIN [Suspect]
     Indication: HEPATITIS C
     Dates: start: 20120214

REACTIONS (7)
  - RECTAL HAEMORRHAGE [None]
  - ABDOMINAL DISTENSION [None]
  - LOSS OF CONSCIOUSNESS [None]
  - FALL [None]
  - ANORECTAL DISCOMFORT [None]
  - CHEMICAL BURN OF GASTROINTESTINAL TRACT [None]
  - HAEMORRHOIDS [None]
